FAERS Safety Report 6856201-6 (Version None)
Quarter: 2010Q3

REPORT INFORMATION
  Report Type: 
  Country: None (occurrence: None)
  Receive Date: 20100719
  Receipt Date: 20100716
  Transmission Date: 20110219
  Serious: Yes (Disabling)
  Sender: FDA-Public Use
  Company Number: GB-TEVA-241518ISR

PATIENT
  Age: 37 Year
  Sex: Female

DRUGS (1)
  1. RAMIPRIL [Suspect]
     Indication: HYPERTENSION
     Route: 048
     Dates: start: 20100520, end: 20100621

REACTIONS (3)
  - BILIARY COLIC [None]
  - GALLBLADDER PAIN [None]
  - PAIN [None]
